FAERS Safety Report 20745456 (Version 2)
Quarter: 2022Q2

REPORT INFORMATION
  Report Type: Spontaneous
  Country: SE (occurrence: None)
  Receive Date: 20220425
  Receipt Date: 20220428
  Transmission Date: 20220720
  Serious: Yes (Other)
  Sender: FDA-Public Use
  Company Number: SE-ROCHE-3078256

PATIENT
  Sex: Female

DRUGS (1)
  1. ROZLYTREK [Suspect]
     Active Substance: ENTRECTINIB
     Indication: Non-small cell lung cancer metastatic
     Route: 065
     Dates: start: 20220315

REACTIONS (5)
  - Diarrhoea [Unknown]
  - Dehydration [Unknown]
  - Eating disorder [Unknown]
  - Pyrexia [Unknown]
  - Legionella test positive [Unknown]
